FAERS Safety Report 18733867 (Version 1)
Quarter: 2021Q1

REPORT INFORMATION
  Report Type: Spontaneous
  Country: US (occurrence: US)
  Receive Date: 20210113
  Receipt Date: 20210113
  Transmission Date: 20210419
  Serious: Yes (Hospitalization)
  Sender: FDA-Public Use
  Company Number: US-JNJFOC-20210104239

PATIENT
  Age: 58 Year
  Sex: Male

DRUGS (1)
  1. IBUPROFEN. [Suspect]
     Active Substance: IBUPROFEN
     Indication: PAIN
     Dosage: (UP TO 12 GRAMS/DAY)?ADDITIONAL INFO: OVERDOSE,IBUPROFEN: 200MG
     Route: 065

REACTIONS (3)
  - Overdose [Recovered/Resolved]
  - Renal tubular acidosis [Recovered/Resolved]
  - Electrocardiogram QRS complex prolonged [Unknown]
